FAERS Safety Report 8557916-4 (Version None)
Quarter: 2012Q3

REPORT INFORMATION
  Report Type: 
  Country: None (occurrence: None)
  Receive Date: 20120801
  Receipt Date: 20120731
  Transmission Date: 20120928
  Serious: Yes (Hospitalization)
  Sender: FDA-Public Use
  Company Number: US-BRISTOL-MYERS SQUIBB COMPANY-15962160

PATIENT
  Age: 71 Year
  Sex: Female

DRUGS (6)
  1. BLINDED: SAXAGLIPTIN [Suspect]
     Indication: TYPE 2 DIABETES MELLITUS
     Dates: start: 20110223, end: 20110807
  2. BLINDED: PLACEBO [Suspect]
     Indication: TYPE 2 DIABETES MELLITUS
     Dates: start: 20110223, end: 20110807
  3. PLAVIX [Suspect]
  4. COUMADIN [Suspect]
     Dates: end: 20110807
  5. GLIPIZIDE [Suspect]
     Indication: TYPE 2 DIABETES MELLITUS
  6. LANTUS [Suspect]
     Indication: TYPE 2 DIABETES MELLITUS

REACTIONS (9)
  - HAEMOGLOBIN DECREASED [None]
  - BLOOD GLUCOSE INCREASED [None]
  - BLOOD UREA ABNORMAL [None]
  - GASTRITIS [None]
  - BLOOD POTASSIUM INCREASED [None]
  - HAEMATOCRIT DECREASED [None]
  - BLOOD CREATININE INCREASED [None]
  - ABDOMINAL PAIN UPPER [None]
  - FAECES DISCOLOURED [None]
